FAERS Safety Report 16743249 (Version 1)
Quarter: 2019Q3

REPORT INFORMATION
  Report Type: Spontaneous
  Country: US (occurrence: US)
  Receive Date: 20190827
  Receipt Date: 20190827
  Transmission Date: 20191005
  Serious: Yes (Other)
  Sender: FDA-Public Use
  Company Number: US-ABBVIE-19K-163-2900820-00

PATIENT
  Age: 57 Year
  Sex: Female

DRUGS (1)
  1. HUMIRA [Suspect]
     Active Substance: ADALIMUMAB
     Indication: HIDRADENITIS
     Dosage: STARTED ABOUT A YEAR AGO
     Route: 058
     Dates: end: 20190814

REACTIONS (2)
  - Major depression [Unknown]
  - Dizziness [Unknown]

NARRATIVE: CASE EVENT DATE: 201903
